FAERS Safety Report 5141634-9 (Version None)
Quarter: 2006Q4

REPORT INFORMATION
  Report Type: 
  Country: None (occurrence: None)
  Receive Date: 20061101
  Receipt Date: 20061026
  Transmission Date: 20070319
  Serious: Yes (Hospitalization)
  Sender: FDA-Public Use
  Company Number: CN-AVENTIS-200621201GDDC

PATIENT
  Age: 76 Year
  Sex: Female

DRUGS (1)
  1. LANTUS [Suspect]
     Indication: DIABETES MELLITUS
     Dosage: DOSE: 6 - 12
     Route: 058
     Dates: start: 20060603

REACTIONS (4)
  - HAEMODIALYSIS [None]
  - OEDEMA PERIPHERAL [None]
  - RENAL FAILURE [None]
  - VISUAL ACUITY REDUCED [None]
